FAERS Safety Report 24325652 (Version 2)
Quarter: 2024Q4

REPORT INFORMATION
  Report Type: Report from Study
  Country: EG (occurrence: EG)
  Receive Date: 20240917
  Receipt Date: 20241001
  Transmission Date: 20250114
  Serious: Yes (Hospitalization, Other)
  Sender: NOVO NORDISK
  Company Number: EG-NOVOPROD-1279947

PATIENT
  Age: 17 Year
  Sex: Male
  Weight: 53 kg

DRUGS (4)
  1. NOVORAPID [Suspect]
     Active Substance: INSULIN ASPART
     Indication: Type 1 diabetes mellitus
     Dosage: 20 IU BEFORE MEALS
     Route: 058
  2. NOVORAPID [Suspect]
     Active Substance: INSULIN ASPART
     Dosage: UNK((HCP ADDED CORRECTIVE DOSES AS PER THE PATIENT^S BGLS)
     Route: 058
  3. TRESIBA [Suspect]
     Active Substance: INSULIN DEGLUDEC
     Indication: Type 1 diabetes mellitus
     Dosage: 40 IU, QD(EVENING)
     Route: 058
  4. TRESIBA [Suspect]
     Active Substance: INSULIN DEGLUDEC
     Dosage: 45 IU, QD(EVENING)
     Route: 058

REACTIONS (7)
  - Diabetic hyperglycaemic coma [Unknown]
  - Hallucination [Unknown]
  - Vomiting [Unknown]
  - Pyrexia [Unknown]
  - Immunodeficiency [Unknown]
  - Coronavirus infection [Unknown]
  - Wrong technique in product usage process [Unknown]
